FAERS Safety Report 6972916-3 (Version None)
Quarter: 2010Q3

REPORT INFORMATION
  Report Type: 
  Country: None (occurrence: None)
  Receive Date: 20100909
  Receipt Date: 20100824
  Transmission Date: 20110219
  Serious: No
  Sender: FDA-Public Use
  Company Number: US-B.I. PHARMACEUTICALS,INC./RIDGEFIELD-2010-BP-09673PF

PATIENT
  Sex: Male

DRUGS (2)
  1. SPIRIVA [Suspect]
  2. XALATAN [Suspect]

REACTIONS (2)
  - DIABETES MELLITUS [None]
  - INTRAOCULAR PRESSURE INCREASED [None]
